FAERS Safety Report 9908888 (Version 2)
Quarter: 2014Q1

REPORT INFORMATION
  Report Type: Spontaneous
  Country: US (occurrence: US)
  Receive Date: 20140219
  Receipt Date: 20140225
  Transmission Date: 20141002
  Serious: No
  Sender: FDA-Public Use
  Company Number: US-009507513-1402USA008444

PATIENT
  Sex: 0

DRUGS (1)
  1. NEXPLANON [Suspect]
     Dosage: 1 ROD/3 YEARS
     Route: 059
     Dates: start: 20130515

REACTIONS (2)
  - Device breakage [Unknown]
  - No adverse event [Unknown]
